FAERS Safety Report 8966293 (Version 2)
Quarter: 2012Q4

REPORT INFORMATION
  Report Type: 
  Country: ES (occurrence: ES)
  Receive Date: 20121217
  Receipt Date: 20121227
  Transmission Date: 20130627
  Serious: Yes (Death)
  Sender: FDA-Public Use
  Company Number: ES-JNJFOC-20121206339

PATIENT
  Age: 4 None
  Sex: Male

DRUGS (1)
  1. RISPERDAL CONSTA [Suspect]
     Indication: PSYCHOTIC DISORDER
     Dosage: for 2 or 3 years
     Route: 030

REACTIONS (2)
  - Cerebral artery embolism [Fatal]
  - Bronchopneumonia [Fatal]
